FAERS Safety Report 6262721-8 (Version None)
Quarter: 2009Q3

REPORT INFORMATION
  Report Type: 
  Country: None (occurrence: None)
  Receive Date: 20090708
  Receipt Date: 20090701
  Transmission Date: 20100115
  Serious: Yes (Death)
  Sender: FDA-Public Use
  Company Number: SPV1-2009-01377

PATIENT
  Age: 74 Year
  Sex: Female

DRUGS (2)
  1. FOSRENOL [Suspect]
     Indication: HYPERPHOSPHATAEMIA
     Dosage: 1000 MG, WITH EACH MEAL, ORAL; 1000 MG, WITH EACH MEAL AND SNACKS, ORAL
     Route: 048
     Dates: start: 20090401, end: 20090601
  2. FOSRENOL [Suspect]
     Indication: HYPERPHOSPHATAEMIA
     Dosage: 1000 MG, WITH EACH MEAL, ORAL; 1000 MG, WITH EACH MEAL AND SNACKS, ORAL
     Route: 048
     Dates: start: 20090603

REACTIONS (1)
  - DEATH [None]
